FAERS Safety Report 8182595-8 (Version None)
Quarter: 2012Q1

REPORT INFORMATION
  Report Type: 
  Country: None (occurrence: None)
  Receive Date: 20120305
  Receipt Date: 20120222
  Transmission Date: 20120608
  Serious: Yes (Other)
  Sender: FDA-Public Use
  Company Number: US-SHIRE-ALL1-2012-01072

PATIENT
  Sex: Male

DRUGS (3)
  1. VYVANSE [Suspect]
     Indication: ATTENTION DEFICIT/HYPERACTIVITY DISORDER
     Dosage: 30 MG, 1X/DAY:QD
     Route: 048
  2. VYVANSE [Suspect]
     Dosage: UNK, UNKNOWN
     Route: 048
  3. VYVANSE [Suspect]
     Dosage: 20 MG, UNKNOWN
     Route: 048

REACTIONS (1)
  - SUICIDAL IDEATION [None]
